FAERS Safety Report 8336484 (Version 6)
Quarter: 2013Q2

REPORT INFORMATION
  Report Type: Spontaneous
  Country: MX (occurrence: MX)
  Receive Date: 20120113
  Receipt Date: 20130419
  Transmission Date: 20140414
  Serious: Yes (Hospitalization, Other)
  Sender: FDA-Public Use
  Company Number: MX-ABBOTT-12P-107-0892360-00

PATIENT
  Age: 51 Year
  Sex: Female
  Weight: 47 kg

DRUGS (2)
  1. HUMIRA 40 MG/ 0.8 ML PRE-FILLED SYRINGE [Suspect]
     Indication: SPONDYLITIS
     Route: 058
     Dates: start: 201106, end: 20111019
  2. METHOTREXATE [Concomitant]
     Indication: PRODUCT USED FOR UNKNOWN INDICATION
     Dosage: 3 TAB ON SAT AND 3 TAB ON SUNDAY: WEEKLY
     Dates: start: 201104, end: 201109

REACTIONS (6)
  - Lung disorder [Recovering/Resolving]
  - Pulmonary tuberculosis [Unknown]
  - Sarcoidosis [Not Recovered/Not Resolved]
  - Herpes virus infection [Recovered/Resolved]
  - Malaise [Unknown]
  - Nerve injury [Not Recovered/Not Resolved]
